FAERS Safety Report 5885299-7 (Version None)
Quarter: 2008Q3

REPORT INFORMATION
  Report Type: 
  Country: None (occurrence: None)
  Receive Date: 20080915
  Receipt Date: 20080915
  Transmission Date: 20090109
  Serious: Yes (Hospitalization)
  Sender: FDA-Public Use
  Company Number: None

PATIENT
  Age: 32 Year
  Sex: Male
  Weight: 64.8644 kg

DRUGS (2)
  1. OXAPROZIN [Suspect]
     Indication: BACK PAIN
     Dosage: ONE TABLET TWICE A DAY PO
     Route: 048
     Dates: start: 20080811, end: 20080811
  2. OXAPROZIN [Suspect]
     Indication: MUSCLE SPASMS
     Dosage: ONE TABLET TWICE A DAY PO
     Route: 048
     Dates: start: 20080811, end: 20080811

REACTIONS (7)
  - BLOOD URINE PRESENT [None]
  - EYE SWELLING [None]
  - GASTROINTESTINAL DISORDER [None]
  - HAEMATOCHEZIA [None]
  - PHARYNGEAL OEDEMA [None]
  - RENAL DISORDER [None]
  - URTICARIA [None]
